FAERS Safety Report 20329859 (Version 2)
Quarter: 2022Q1

REPORT INFORMATION
  Report Type: Spontaneous
  Country: CA (occurrence: CA)
  Receive Date: 20220112
  Receipt Date: 20220203
  Transmission Date: 20220424
  Serious: Yes (Other)
  Sender: FDA-Public Use
  Company Number: CA-SUN PHARMACEUTICAL INDUSTRIES LTD-2021R1-323031

PATIENT
  Age: 39 Year
  Sex: Female

DRUGS (9)
  1. ESCITALOPRAM [Suspect]
     Active Substance: ESCITALOPRAM OXALATE
     Indication: Anxiety
     Dosage: 5 MILLIGRAM, DAILY
     Route: 048
     Dates: start: 201810
  2. ESCITALOPRAM [Suspect]
     Active Substance: ESCITALOPRAM OXALATE
     Indication: Depression
     Dosage: 7.5 MILLIGRAM, DAILY
     Route: 048
  3. SUMATRIPTAN [Suspect]
     Active Substance: SUMATRIPTAN
     Indication: Migraine
     Dosage: 100 MILLIGRAM, DAILY (2 DAYS A WEEK)
     Route: 048
     Dates: start: 201701
  4. KETOROLAC [Concomitant]
     Active Substance: KETOROLAC TROMETHAMINE
     Indication: Migraine
     Dosage: UNK (10 MG, DAILY PRN)
     Route: 048
  5. ETHINYL ESTRADIOL\LEVONORGESTREL [Concomitant]
     Active Substance: ETHINYL ESTRADIOL\LEVONORGESTREL
     Indication: Hormonal contraception
     Dosage: UNK (100 MCG/20 MCG DAILY)
     Route: 048
  6. LORATADINE [Concomitant]
     Active Substance: LORATADINE
     Indication: Rhinitis allergic
     Dosage: UNK (5 MG)
     Route: 065
  7. PROMETHAZINE [Concomitant]
     Active Substance: PROMETHAZINE HYDROCHLORIDE
     Indication: Migraine
     Dosage: UNK (25 MG, DAILY PRN)
     Route: 048
  8. PSEUDOEPHEDRINE [Concomitant]
     Active Substance: PSEUDOEPHEDRINE
     Indication: Rhinitis allergic
     Dosage: UNK (120 MG DAILY PRN, ONCE OR TWICE A WEEK)
     Route: 065
  9. ZOLPIDEM [Concomitant]
     Active Substance: ZOLPIDEM TARTRATE
     Indication: Insomnia
     Dosage: UNK (5 MG AT BEDTIME PRN)
     Route: 048

REACTIONS (1)
  - Depression [Unknown]

NARRATIVE: CASE EVENT DATE: 20181001
